FAERS Safety Report 13630914 (Version 1)
Quarter: 2017Q2

REPORT INFORMATION
  Report Type: Spontaneous
  Country: US (occurrence: US)
  Receive Date: 20170531
  Receipt Date: 20170531
  Transmission Date: 20170830
  Serious: No
  Sender: FDA-Public Use
  Company Number: US-ASTELLAS-1338659

PATIENT
  Age: 73 Year
  Sex: Female
  Weight: 59.47 kg

DRUGS (1)
  1. TARCEVA [Suspect]
     Active Substance: ERLOTINIB HYDROCHLORIDE
     Indication: PRODUCT USED FOR UNKNOWN INDICATION
     Route: 048
     Dates: start: 20130101, end: 201311

REACTIONS (2)
  - Rash [Unknown]
  - Disease progression [Unknown]

NARRATIVE: CASE EVENT DATE: 201311
